FAERS Safety Report 25592123 (Version 5)
Quarter: 2025Q4

REPORT INFORMATION
  Report Type: Spontaneous
  Country: US (occurrence: None)
  Receive Date: 20250722
  Receipt Date: 20251226
  Transmission Date: 20260118
  Serious: Yes (Other)
  Sender: UCB
  Company Number: US-UCBSA-2025044882

PATIENT
  Age: 35 Year
  Weight: 132.88 kg

DRUGS (2)
  1. BIMZELX [Suspect]
     Active Substance: BIMEKIZUMAB-BKZX
     Indication: Hidradenitis
     Dosage: 320 MILLIGRAM, EV 2 WEEKS(QOW)
  2. BIMZELX [Suspect]
     Active Substance: BIMEKIZUMAB-BKZX
     Dosage: 320 MILLIGRAM, EV 4 WEEKS

REACTIONS (7)
  - Gastric haemorrhage [Unknown]
  - Nausea [Unknown]
  - Acne [Unknown]
  - Gastroenteritis viral [Unknown]
  - Headache [Unknown]
  - Drug ineffective [Unknown]
  - Product availability issue [Unknown]
